FAERS Safety Report 24073844 (Version 1)
Quarter: 2024Q3

REPORT INFORMATION
  Report Type: Spontaneous
  Country: JP (occurrence: JP)
  Receive Date: 20240710
  Receipt Date: 20240710
  Transmission Date: 20241016
  Serious: Yes (Hospitalization, Other)
  Sender: PIERRE FABRE MEDICAMENT
  Company Number: JP-PFM-2020-21045

PATIENT
  Age: 0 Year
  Sex: Female
  Weight: 7.28 kg

DRUGS (4)
  1. PROPRANOLOL HYDROCHLORIDE [Suspect]
     Active Substance: PROPRANOLOL HYDROCHLORIDE
     Indication: Infantile haemangioma
     Dosage: 1 MG/KG/DAY
     Route: 048
     Dates: start: 20200128, end: 20200129
  2. PROPRANOLOL HYDROCHLORIDE [Suspect]
     Active Substance: PROPRANOLOL HYDROCHLORIDE
     Dosage: 2 MG/KG/DAY
     Route: 048
     Dates: start: 20200130, end: 20200131
  3. PROPRANOLOL HYDROCHLORIDE [Suspect]
     Active Substance: PROPRANOLOL HYDROCHLORIDE
     Dosage: 3 MG/KG/DAY
     Route: 048
     Dates: start: 20200201, end: 202009
  4. PROPRANOLOL HYDROCHLORIDE [Suspect]
     Active Substance: PROPRANOLOL HYDROCHLORIDE
     Dosage: 3 MG/KG/DAY
     Route: 048
     Dates: start: 202010, end: 202010

REACTIONS (4)
  - Hypoglycaemic seizure [Recovered/Resolved]
  - Hypoglycaemia [Recovered/Resolved]
  - Product use issue [Unknown]
  - Off label use [Unknown]

NARRATIVE: CASE EVENT DATE: 20201001
